FAERS Safety Report 22265780 (Version 1)
Quarter: 2023Q2

REPORT INFORMATION
  Report Type: Report from Study
  Country: IT (occurrence: IT)
  Receive Date: 20230428
  Receipt Date: 20230428
  Transmission Date: 20230721
  Serious: Yes (Disabling)
  Sender: FDA-Public Use
  Company Number: None

PATIENT
  Age: 56 Year
  Sex: Female
  Weight: 65 kg

DRUGS (3)
  1. ROMIPLOSTIM [Suspect]
     Active Substance: ROMIPLOSTIM
     Indication: Immune thrombocytopenia
     Dosage: 130 MICROGRAM, QD
     Route: 065
     Dates: start: 20221221, end: 20230401
  2. MAXALT [Concomitant]
     Active Substance: RIZATRIPTAN BENZOATE
     Indication: Migraine
     Dosage: UNK
     Route: 048
  3. RABEPRAZOLE SODIUM [Concomitant]
     Active Substance: RABEPRAZOLE SODIUM
     Dosage: 20 MILLIGRAM
     Route: 048

REACTIONS (1)
  - Retinal artery thrombosis [Recovered/Resolved with Sequelae]

NARRATIVE: CASE EVENT DATE: 20230401
